FAERS Safety Report 4707331-6 (Version None)
Quarter: 2005Q3

REPORT INFORMATION
  Report Type: 
  Country: None (occurrence: None)
  Receive Date: 20050706
  Receipt Date: 20050630
  Transmission Date: 20060218
  Serious: Yes (Other)
  Sender: FDA-Public Use
  Company Number: US-BRISTOL-MYERS SQUIBB COMPANY-13021480

PATIENT

DRUGS (8)
  1. CYCLOPHOSPHAMIDE [Suspect]
     Indication: HODGKIN'S DISEASE
  2. DOXORUBICIN HCL [Suspect]
     Indication: HODGKIN'S DISEASE
  3. VINCRISTINE [Suspect]
     Indication: HODGKIN'S DISEASE
  4. BLEOMYCIN SULFATE [Suspect]
     Indication: HODGKIN'S DISEASE
  5. PACLITAXEL [Suspect]
     Indication: HODGKIN'S DISEASE
  6. PREDNISONE TAB [Suspect]
     Indication: HODGKIN'S DISEASE
  7. VINBLASTINE [Suspect]
     Indication: HODGKIN'S DISEASE
  8. PENICILLAMINE [Suspect]

REACTIONS (1)
  - SCLERODERMA [None]
